FAERS Safety Report 7898152-4 (Version None)
Quarter: 2011Q4

REPORT INFORMATION
  Report Type: 
  Country: None (occurrence: None)
  Receive Date: 20111103
  Receipt Date: 20111103
  Transmission Date: 20120403
  Serious: Yes (Disabling)
  Sender: FDA-Public Use
  Company Number: 1022556-2011-00029

PATIENT
  Age: 47 Year
  Sex: Female

DRUGS (1)
  1. ICY HOT BACK PATCH 5 CT [Suspect]
     Indication: MYALGIA
     Dosage: TOPICAL; ONCE
     Route: 061

REACTIONS (7)
  - APPLICATION SITE HYPERAESTHESIA [None]
  - APPLICATION SITE DISCOLOURATION [None]
  - APPLICATION SITE EXFOLIATION [None]
  - APPLICATION SITE VESICLES [None]
  - APPLICATION SITE REACTION [None]
  - APPLICATION SITE BURN [None]
  - PRODUCT ADHESION ISSUE [None]
